FAERS Safety Report 13709815 (Version 2)
Quarter: 2021Q1

REPORT INFORMATION
  Report Type: Report from Study
  Country: US (occurrence: US)
  Receive Date: 20170703
  Receipt Date: 20210226
  Transmission Date: 20210419
  Serious: Yes (Hospitalization)
  Sender: FDA-Public Use
  Company Number: US-VIFOR (INTERNATIONAL) INC.-VIT-2017-07118

PATIENT
  Age: 68 Year
  Sex: Female

DRUGS (19)
  1. TOLTERODINE [Concomitant]
     Active Substance: TOLTERODINE
  2. COLCRYS/COLCHINE [Concomitant]
  3. LINZESS [Concomitant]
     Active Substance: LINACLOTIDE
  4. MEATMUCIL [Concomitant]
  5. SODIUM BICARBONATE. [Concomitant]
     Active Substance: SODIUM BICARBONATE
  6. VELTASSA [Suspect]
     Active Substance: PATIROMER
     Indication: HYPERKALAEMIA
     Route: 048
     Dates: start: 20161124
  7. NORCO [Concomitant]
     Active Substance: ACETAMINOPHEN\HYDROCODONE BITARTRATE
  8. BENTYL [Concomitant]
     Active Substance: DICYCLOMINE HYDROCHLORIDE
  9. VITAMIN?D [Concomitant]
     Active Substance: VITAMIN D NOS
  10. FISH OIL [Concomitant]
     Active Substance: FISH OIL
  11. JANUVIA [Concomitant]
     Active Substance: SITAGLIPTIN PHOSPHATE
  12. METHOTREXATE. [Concomitant]
     Active Substance: METHOTREXATE
  13. HYDROCO/APAP [Concomitant]
     Active Substance: ACETAMINOPHEN\HYDROCODONE
  14. CLONIDINE. [Concomitant]
     Active Substance: CLONIDINE
  15. METFORMIN [Concomitant]
     Active Substance: METFORMIN HYDROCHLORIDE
  16. METOPROLOL. [Concomitant]
     Active Substance: METOPROLOL
  17. HYDRALAZINE [Concomitant]
     Active Substance: HYDRALAZINE HYDROCHLORIDE
  18. PREDNISONE. [Concomitant]
     Active Substance: PREDNISONE
  19. HUMIRA [Concomitant]
     Active Substance: ADALIMUMAB

REACTIONS (2)
  - Chest pain [Recovering/Resolving]
  - Constipation [Not Recovered/Not Resolved]

NARRATIVE: CASE EVENT DATE: 20170620
